FAERS Safety Report 8977740 (Version 1)
Quarter: 2012Q4

REPORT INFORMATION
  Report Type: Report from Study
  Country: US (occurrence: US)
  Receive Date: 20121220
  Receipt Date: 20121220
  Transmission Date: 20130627
  Serious: Yes (Other)
  Sender: FDA-Public Use
  Company Number: US-ROCHE-1172454

PATIENT
  Age: 56 Year
  Sex: Male
  Weight: 87.1 kg

DRUGS (2)
  1. CAPECITABINE [Suspect]
     Indication: PANCREATIC CARCINOMA
     Route: 048
  2. CAPECITABINE [Suspect]
     Route: 048
     Dates: start: 200901, end: 20090217

REACTIONS (2)
  - Disease progression [Unknown]
  - Drug ineffective [Unknown]
